FAERS Safety Report 10408702 (Version 2)
Quarter: 2014Q3

REPORT INFORMATION
  Report Type: Spontaneous
  Country: US (occurrence: US)
  Receive Date: 20140826
  Receipt Date: 20140826
  Transmission Date: 20150326
  Serious: Yes (Hospitalization)
  Sender: FDA-Public Use
  Company Number: US-UNITED THERAPEUTICS-UNT-2014-005209

PATIENT
  Age: 62 Year
  Sex: Female
  Weight: 49.43 kg

DRUGS (3)
  1. REMODULIN [Suspect]
     Active Substance: TREPROSTINIL
     Indication: COR PULMONALE CHRONIC
     Dosage: 0.099 ?G/KG, CONTINUING
     Route: 041
     Dates: start: 20100421
  2. ADCIRCA [Concomitant]
     Active Substance: TADALAFIL
     Indication: PRODUCT USED FOR UNKNOWN INDICATION
  3. REMODULIN [Suspect]
     Active Substance: TREPROSTINIL
     Dosage: 0.099 ?G/KG, CONTINUING
     Route: 041
     Dates: start: 20100421

REACTIONS (3)
  - Bacterial sepsis [Unknown]
  - Bacterial infection [Unknown]
  - Bacteraemia [Recovering/Resolving]

NARRATIVE: CASE EVENT DATE: 2014
